FAERS Safety Report 12453980 (Version 1)
Quarter: 2016Q2

REPORT INFORMATION
  Report Type: Report from Study
  Country: US (occurrence: US)
  Receive Date: 20160610
  Receipt Date: 20160610
  Transmission Date: 20160815
  Serious: Yes (Hospitalization, Other)
  Sender: FDA-Public Use
  Company Number: US-VALIDUS PHARMACEUTICALS LLC-US-2011VAL000442

PATIENT

DRUGS (20)
  1. PROCRIT [Concomitant]
     Active Substance: ERYTHROPOIETIN
     Indication: PRODUCT USED FOR UNKNOWN INDICATION
     Dosage: 2000 UNITS/ML, 2X/WK MTH (DAILY ON MONDAY AND THURSDAY) 8 VIAL
     Route: 058
  2. FERREX [Concomitant]
     Indication: PRODUCT USED FOR UNKNOWN INDICATION
     Dosage: UNK
  3. CYSTAGON [Concomitant]
     Active Substance: CYSTEAMINE BITARTRATE
     Indication: PRODUCT USED FOR UNKNOWN INDICATION
     Dosage: Q6HR, 720 CAPSULE (1 IN 6 HR)
     Route: 048
  4. UROCIT-K [Concomitant]
     Active Substance: POTASSIUM CITRATE
     Indication: PRODUCT USED FOR UNKNOWN INDICATION
     Dosage: 3 TABLETS, 4 TIMES IN A DAY, 360 TABLETS (10 MEQ, 2 IN 1 D)
     Route: 048
  5. FERRLECIT                          /00023541/ [Concomitant]
     Indication: PRODUCT USED FOR UNKNOWN INDICATION
     Dosage: PIGGY BAG (1 IN 2 WK)
     Route: 042
  6. ZEMPLAR [Concomitant]
     Active Substance: PARICALCITOL
     Indication: PRODUCT USED FOR UNKNOWN INDICATION
     Dosage: KDU 3X/WK (4 ?G)
     Route: 042
  7. CYSTAGON [Concomitant]
     Active Substance: CYSTEAMINE BITARTRATE
     Dosage: Q6HR, 360 CAPSULE (350 MG, 1 IN 6 HR)
     Route: 048
  8. UROCIT-K [Concomitant]
     Active Substance: POTASSIUM CITRATE
     Dosage: 30 MEQ, 2 IN 1 D
     Route: 048
  9. ACETAMINOPHEN. [Concomitant]
     Active Substance: ACETAMINOPHEN
     Indication: PRODUCT USED FOR UNKNOWN INDICATION
     Dosage: EVERY 4 HOURS, KDU PRN (325 MG)
     Route: 048
  10. SODIUM CHLORIDE. [Concomitant]
     Active Substance: SODIUM CHLORIDE
     Indication: PRODUCT USED FOR UNKNOWN INDICATION
     Dosage: 200 ML, KDU PRN (1.8 G)
  11. CALCITRIOL. [Suspect]
     Active Substance: CALCITRIOL
     Indication: PRODUCT USED FOR UNKNOWN INDICATION
     Dosage: 50 ?G, QD
     Route: 048
  12. NUTROPIN AQ [Suspect]
     Active Substance: SOMATROPIN
     Indication: CHRONIC KIDNEY DISEASE
     Dosage: 1.7 MG, QD
     Route: 058
  13. NUTROPIN AQ [Suspect]
     Active Substance: SOMATROPIN
     Dosage: PRN (1.8 MG, 1 IN 1 D)
     Route: 058
  14. K-DUR [Concomitant]
     Active Substance: POTASSIUM CHLORIDE
     Indication: PRODUCT USED FOR UNKNOWN INDICATION
     Dosage: 1 TABLET. Q6HR, 120 TABLETS (20 MEQ, 1 IN 6 HR)
     Route: 048
  15. TUMS [Concomitant]
     Active Substance: CALCIUM CARBONATE
     Indication: PRODUCT USED FOR UNKNOWN INDICATION
     Dosage: TABLETS Q6HR, 2 TABLETS, Q6HR, 240 TABLETS (1000 MG, 1 IN 6 HR)
     Route: 048
  16. HEPARIN [Concomitant]
     Active Substance: HEPARIN SODIUM
     Indication: PRODUCT USED FOR UNKNOWN INDICATION
     Dosage: 5000 UNITS/ML, KDU 3X/WK
     Route: 042
  17. LIDOCAINE. [Concomitant]
     Active Substance: LIDOCAINE
     Indication: PRODUCT USED FOR UNKNOWN INDICATION
     Dosage: KDU PRN (0.25 ML)
     Route: 026
  18. EPOGEN [Concomitant]
     Active Substance: ERYTHROPOIETIN
     Indication: PRODUCT USED FOR UNKNOWN INDICATION
     Dosage: 10000 UNITS/ML, 500 UNITS, KDU 3X/WK (2000 IU, 2 IN 1 WK)
     Route: 058
  19. HEPARIN [Concomitant]
     Active Substance: HEPARIN SODIUM
     Dosage: 1000 UNIT/ML, PIGGY BACK, KDU 3X/WK
     Route: 042
  20. ALBUMIN HUMAN [Concomitant]
     Active Substance: ALBUMIN HUMAN
     Indication: PRODUCT USED FOR UNKNOWN INDICATION
     Dosage: 12.5 GM/250ML, KDU PRN (12.5 G)
     Route: 042

REACTIONS (7)
  - Muscle spasms [Unknown]
  - Photosensitivity reaction [Unknown]
  - Hyperparathyroidism [Unknown]
  - Growth retardation [Unknown]
  - Aggression [Unknown]
  - Abdominal distension [Unknown]
  - Periorbital oedema [Unknown]

NARRATIVE: CASE EVENT DATE: 20090112
